FAERS Safety Report 15286374 (Version 16)
Quarter: 2021Q3

REPORT INFORMATION
  Report Type: Spontaneous
  Country: FR (occurrence: FR)
  Receive Date: 20180816
  Receipt Date: 20210920
  Transmission Date: 20211014
  Serious: Yes (Death, Life-Threatening, Other)
  Sender: FDA-Public Use
  Company Number: FR-MYLANLABS-2018M1062163

PATIENT
  Age: 89 Year
  Sex: Female
  Weight: 67.5 kg

DRUGS (27)
  1. BISOPROLOL [Suspect]
     Active Substance: BISOPROLOL
     Indication: HYPERTENSION
     Dosage: UNK
     Route: 048
  2. METFORMIN [Suspect]
     Active Substance: METFORMIN HYDROCHLORIDE
     Dosage: 2 DF, QD
     Route: 048
     Dates: start: 20171025, end: 20171025
  3. BISOPROLOL [Suspect]
     Active Substance: BISOPROLOL
     Dosage: UNK UNK, QD
     Route: 048
     Dates: end: 20171025
  4. METFORMIN [Suspect]
     Active Substance: METFORMIN HYDROCHLORIDE
     Dosage: 2 DF, QD
     Route: 048
     Dates: end: 20171025
  5. ALPRAZOLAM. [Suspect]
     Active Substance: ALPRAZOLAM
     Dosage: UNK
     Route: 048
  6. FUROSEMIDE. [Suspect]
     Active Substance: FUROSEMIDE
     Dosage: UNK
     Route: 048
     Dates: end: 20171025
  7. RAMIPRIL. [Suspect]
     Active Substance: RAMIPRIL
     Indication: ANXIETY
     Dosage: 1 DF, QD
     Route: 048
     Dates: end: 20171025
  8. PANTOPRAZOLE [Suspect]
     Active Substance: PANTOPRAZOLE
     Dosage: UNK
     Route: 048
  9. ESIDREX [Suspect]
     Active Substance: HYDROCHLOROTHIAZIDE
     Indication: HYPERTENSION
     Dosage: 1 DF, QD
     Route: 048
  10. BISOPROLOL [Suspect]
     Active Substance: BISOPROLOL
     Dosage: UNK
     Route: 048
     Dates: start: 20171025, end: 20171025
  11. PANTOPRAZOLE [Suspect]
     Active Substance: PANTOPRAZOLE
     Dosage: UNK
     Route: 048
     Dates: end: 20171025
  12. PREVISCAN                          /00789001/ [Suspect]
     Active Substance: FLUINDIONE
     Dosage: 1 DOSAGE FORM, QD DOSE 1, 1X/DAY)
     Route: 048
     Dates: end: 20171025
  13. RAMIPRIL. [Suspect]
     Active Substance: RAMIPRIL
     Indication: HYPERTENSION
     Dosage: 1.25 MILLIGRAM, QD
     Route: 048
     Dates: start: 20171025, end: 20171025
  14. RAMIPRIL. [Suspect]
     Active Substance: RAMIPRIL
     Dosage: 1.25 MILLIGRAM, QD
     Route: 048
     Dates: end: 20171025
  15. PANTOPRAZOLE [Suspect]
     Active Substance: PANTOPRAZOLE
     Indication: PRODUCT USED FOR UNKNOWN INDICATION
     Dosage: UNK
     Route: 048
     Dates: start: 20171025, end: 20171025
  16. RAMIPRIL. [Suspect]
     Active Substance: RAMIPRIL
     Dosage: 1.25 DF, QD
     Route: 048
     Dates: start: 20171025
  17. PANTOPRAZOLE [Suspect]
     Active Substance: PANTOPRAZOLE
     Dosage: UNK
     Route: 048
     Dates: end: 20171025
  18. ALPRAZOLAM. [Suspect]
     Active Substance: ALPRAZOLAM
     Dosage: 1 DOSAGE FORM, QD DOSE 1, QD (UNK, 1X/DAY)
     Route: 048
     Dates: end: 20171025
  19. METFORMIN [Suspect]
     Active Substance: METFORMIN HYDROCHLORIDE
     Indication: TYPE 2 DIABETES MELLITUS
     Dosage: 2 DF, QD
     Route: 048
  20. RAMIPRIL. [Suspect]
     Active Substance: RAMIPRIL
     Dosage: 1.25 DF, 1X/DAY
     Route: 048
  21. PREVISCAN                          /00789001/ [Suspect]
     Active Substance: FLUINDIONE
     Indication: ANTICOAGULANT THERAPY
     Dosage: UNK
     Route: 048
     Dates: start: 20171025, end: 20171025
  22. ESIDREX [Suspect]
     Active Substance: HYDROCHLOROTHIAZIDE
     Dosage: 1 DF, QD
     Route: 048
     Dates: start: 20171025, end: 20171025
  23. METFORMIN [Suspect]
     Active Substance: METFORMIN HYDROCHLORIDE
     Indication: PRODUCT USED FOR UNKNOWN INDICATION
     Dosage: 2 DOSAGE FORM, QD
     Route: 048
     Dates: start: 20171025
  24. BISOPROLOL [Suspect]
     Active Substance: BISOPROLOL
     Dosage: 1 DOSAGE FORM, QD
     Route: 048
     Dates: end: 20171025
  25. FUROSEMIDE. [Suspect]
     Active Substance: FUROSEMIDE
     Indication: HYPERTENSION
     Dosage: UNK
     Route: 048
     Dates: start: 20171025, end: 20171025
  26. ALPRAZOLAM. [Suspect]
     Active Substance: ALPRAZOLAM
     Indication: ANXIETY
     Dosage: UNK
     Route: 048
     Dates: start: 20171025, end: 20171025
  27. ESIDREX [Suspect]
     Active Substance: HYDROCHLOROTHIAZIDE
     Dosage: 1 DF, QD
     Route: 048
     Dates: end: 20171025

REACTIONS (5)
  - Lactic acidosis [Fatal]
  - Hyperkalaemia [Fatal]
  - Acute kidney injury [Fatal]
  - Shock haemorrhagic [Fatal]
  - Anaemia [Fatal]

NARRATIVE: CASE EVENT DATE: 20171025
